FAERS Safety Report 23507710 (Version 6)
Quarter: 2025Q2

REPORT INFORMATION
  Report Type: Spontaneous
  Country: US (occurrence: US)
  Receive Date: 20240209
  Receipt Date: 20250613
  Transmission Date: 20250717
  Serious: Yes (Other)
  Sender: PFIZER
  Company Number: US-PFIZER INC-PV202400015254

PATIENT
  Age: 77 Year
  Sex: Male
  Weight: 48.073 kg

DRUGS (3)
  1. VYNDAMAX [Suspect]
     Active Substance: TAFAMIDIS
     Indication: Amyloidosis
     Dates: start: 20230625
  2. FARXIGA [Concomitant]
     Active Substance: DAPAGLIFLOZIN PROPANEDIOL
     Dates: start: 202306
  3. ELIQUIS [Concomitant]
     Active Substance: APIXABAN
     Dates: start: 202306

REACTIONS (5)
  - Cataract [Unknown]
  - Glaucoma [Unknown]
  - Parkinson^s disease [Not Recovered/Not Resolved]
  - Nasopharyngitis [Unknown]
  - Illness [Unknown]
